FAERS Safety Report 21990682 (Version 3)
Quarter: 2023Q1

REPORT INFORMATION
  Report Type: Spontaneous
  Country: US (occurrence: US)
  Receive Date: 20230214
  Receipt Date: 20230216
  Transmission Date: 20230418
  Serious: No
  Sender: FDA-Public Use
  Company Number: US-PFIZER INC-PV202300027945

PATIENT
  Age: 68 Year
  Sex: Male

DRUGS (8)
  1. MEKTOVI [Suspect]
     Active Substance: BINIMETINIB
     Indication: Metastatic malignant melanoma
     Dosage: 15 MG
  2. MEKTOVI [Suspect]
     Active Substance: BINIMETINIB
     Dosage: 4 DF, 1X/DAY
  3. MEKTOVI [Suspect]
     Active Substance: BINIMETINIB
     Dosage: 6 DF, 1X/DAY
  4. MEKTOVI [Suspect]
     Active Substance: BINIMETINIB
     Dosage: 45 MG, 2X/DAY
     Route: 048
  5. BRAFTOVI [Suspect]
     Active Substance: ENCORAFENIB
     Indication: Metastatic malignant melanoma
     Dosage: 6 DF, DAILY (TAKE 6 CAPSULE 450)
     Route: 048
  6. BRAFTOVI [Suspect]
     Active Substance: ENCORAFENIB
     Dosage: 4 DF, 1X/DAY
  7. BRAFTOVI [Suspect]
     Active Substance: ENCORAFENIB
     Dosage: 5 DF, 1X/DAY
  8. BRAFTOVI [Suspect]
     Active Substance: ENCORAFENIB
     Dosage: 6 DF, 1X/DAY

REACTIONS (1)
  - Neoplasm progression [Unknown]
